FAERS Safety Report 10455514 (Version 1)
Quarter: 2014Q3

REPORT INFORMATION
  Report Type: Spontaneous
  Country: US (occurrence: None)
  Receive Date: 20140915
  Receipt Date: 20140915
  Transmission Date: 20150326
  Serious: Yes (Hospitalization, Other)
  Sender: FDA-Public Use
  Company Number: None

PATIENT
  Age: 58 Year
  Sex: Male
  Weight: 72.5 kg

DRUGS (1)
  1. AMICAR [Suspect]
     Active Substance: AMINOCAPROIC ACID

REACTIONS (4)
  - Dyspnoea [None]
  - Chest discomfort [None]
  - Malaise [None]
  - Chest pain [None]

NARRATIVE: CASE EVENT DATE: 20140911
